FAERS Safety Report 9364743 (Version 2)
Quarter: 2013Q4

REPORT INFORMATION
  Report Type: Spontaneous
  Country: US (occurrence: US)
  Receive Date: 20130624
  Receipt Date: 20131126
  Transmission Date: 20140711
  Serious: Yes (Hospitalization)
  Sender: FDA-Public Use
  Company Number: US-B.I. PHARMACEUTICALS,INC./RIDGEFIELD-2013-BI-17418BP

PATIENT
  Sex: Female
  Weight: 81.65 kg

DRUGS (18)
  1. PRADAXA [Suspect]
     Indication: ATRIAL FIBRILLATION
     Dates: start: 20110422, end: 20110701
  2. PRADAXA [Suspect]
     Indication: ANTICOAGULANT THERAPY
  3. LIDOCAINE [Concomitant]
     Route: 061
  4. DILAUDID [Concomitant]
     Indication: PAIN
     Route: 048
  5. FENTANYL [Concomitant]
  6. GLYBURIDE [Concomitant]
     Dosage: 5 MG
     Route: 048
  7. LASIX [Concomitant]
     Dosage: 40 MG
     Route: 048
  8. LISINOPRIL [Concomitant]
     Dosage: 40 MG
     Route: 048
  9. LOPRESSOR [Concomitant]
     Dosage: 50 MG
  10. MULTIVITAMIN [Concomitant]
  11. ZOLOFT [Concomitant]
     Dosage: 100 MG
     Route: 048
  12. LOVASTATIN [Concomitant]
     Dosage: 40 MG
     Route: 048
  13. TYLENOL [Concomitant]
     Indication: PAIN
     Route: 048
  14. METFORMIN [Concomitant]
     Route: 048
  15. REMERON [Concomitant]
     Route: 048
  16. GABAPENTIN [Concomitant]
     Route: 048
  17. ADVAIR DISKUS [Concomitant]
     Route: 055
  18. FERROUS SULFATE [Concomitant]
     Dosage: 65 MG
     Route: 048

REACTIONS (2)
  - Subdural haematoma [Unknown]
  - Coagulopathy [Unknown]
